FAERS Safety Report 26028889 (Version 1)
Quarter: 2025Q4

REPORT INFORMATION
  Report Type: Spontaneous
  Country: EU (occurrence: EU)
  Receive Date: 20251112
  Receipt Date: 20251112
  Transmission Date: 20260117
  Serious: Yes (Other)
  Sender: ABBVIE
  Company Number: EU-ABBVIE-6536455

PATIENT
  Age: 76 Year
  Sex: Female

DRUGS (8)
  1. VENETOCLAX [Suspect]
     Active Substance: VENETOCLAX
     Indication: Acute myeloid leukaemia
     Dosage: 400
     Route: 048
     Dates: start: 20250520
  2. VENETOCLAX [Suspect]
     Active Substance: VENETOCLAX
     Indication: Acute myeloid leukaemia
     Dosage: 100/200/400?LAST ADMIN DATE- 2025
     Route: 048
     Dates: start: 20250422
  3. AZACITIDINE [Concomitant]
     Active Substance: AZACITIDINE
     Indication: Acute myeloid leukaemia
     Dosage: 700 MILLIGRAM?LAST ADMIN DATE- 2025
     Dates: start: 20250706
  4. AZACITIDINE [Concomitant]
     Active Substance: AZACITIDINE
     Indication: Acute myeloid leukaemia
     Dosage: 700 MILLIGRAM?LAST ADMIN DATE- 2025
     Dates: start: 20250520
  5. AZACITIDINE [Concomitant]
     Active Substance: AZACITIDINE
     Indication: Acute myeloid leukaemia
     Dosage: 700 MILLIGRAM?LAST ADMIN DATE- 2025
     Dates: start: 20250731
  6. AZACITIDINE [Concomitant]
     Active Substance: AZACITIDINE
     Indication: Acute myeloid leukaemia
     Dosage: 700 MILLIGRAM?LAST ADMIN DATE- 2025
     Dates: start: 20250827
  7. AZACITIDINE [Concomitant]
     Active Substance: AZACITIDINE
     Indication: Acute myeloid leukaemia
     Dosage: 800 MILLIGRAM?LAST ADMIN DATE- 2025
     Dates: start: 20250422
  8. AZACITIDINE [Concomitant]
     Active Substance: AZACITIDINE
     Indication: Acute myeloid leukaemia
     Dosage: 700 MILLIGRAM
     Dates: start: 20251031

REACTIONS (14)
  - Deafness transitory [Recovering/Resolving]
  - Fall [Unknown]
  - Erythema nodosum [Recovering/Resolving]
  - Injury [Unknown]
  - Neutrophil count abnormal [Unknown]
  - Haemoglobin decreased [Unknown]
  - White blood cell count decreased [Recovered/Resolved]
  - Thrombosis [Recovered/Resolved]
  - Exudative retinopathy [Unknown]
  - Pyrexia [Unknown]
  - Pyoderma gangrenosum [Recovering/Resolving]
  - COVID-19 [Unknown]
  - Erythema [Recovering/Resolving]
  - Dry skin [Recovering/Resolving]

NARRATIVE: CASE EVENT DATE: 20250519
